FAERS Safety Report 23313599 (Version 1)
Quarter: 2023Q4

REPORT INFORMATION
  Report Type: Spontaneous
  Country: US (occurrence: None)
  Receive Date: 20231219
  Receipt Date: 20231219
  Transmission Date: 20240110
  Serious: Yes (Death)
  Sender: FDA-Public Use
  Company Number: None

PATIENT
  Age: 58 Year
  Sex: Male
  Weight: 89.8 kg

DRUGS (2)
  1. YESCARTA [Suspect]
     Active Substance: AXICABTAGENE CILOLEUCEL
     Indication: Diffuse large B-cell lymphoma recurrent
     Dosage: OTHER FREQUENCY : 1;?
     Route: 042
     Dates: start: 20231031, end: 20231031
  2. YESCARTA [Suspect]
     Active Substance: AXICABTAGENE CILOLEUCEL
     Indication: Diffuse large B-cell lymphoma refractory

REACTIONS (10)
  - Lymphocyte adoptive therapy [None]
  - Cytokine release syndrome [None]
  - Neurotoxicity [None]
  - Febrile neutropenia [None]
  - Embolic stroke [None]
  - Atrial fibrillation [None]
  - Colitis [None]
  - Norovirus infection [None]
  - Graft versus host disease in liver [None]
  - Condition aggravated [None]

NARRATIVE: CASE EVENT DATE: 20231125
